FAERS Safety Report 24121334 (Version 3)
Quarter: 2024Q3

REPORT INFORMATION
  Report Type: Spontaneous
  Country: US (occurrence: None)
  Receive Date: 20240722
  Receipt Date: 20240829
  Transmission Date: 20241017
  Serious: Yes (Death, Hospitalization, Other)
  Sender: ASTRAZENECA
  Company Number: 2024A166184

PATIENT
  Age: 69 Year
  Sex: Male
  Weight: 68.7 kg

DRUGS (23)
  1. LYNPARZA [Suspect]
     Active Substance: OLAPARIB
     Indication: Adenocarcinoma
     Route: 048
     Dates: start: 202302, end: 202307
  2. DOCETAXEL [Suspect]
     Active Substance: DOCETAXEL\DOCETAXEL ANHYDROUS
     Indication: Adenocarcinoma
     Route: 042
     Dates: start: 20231114, end: 20231114
  3. DOCETAXEL [Suspect]
     Active Substance: DOCETAXEL\DOCETAXEL ANHYDROUS
     Indication: Adenocarcinoma
     Route: 042
     Dates: start: 20231205, end: 20231205
  4. DOCETAXEL [Suspect]
     Active Substance: DOCETAXEL\DOCETAXEL ANHYDROUS
     Indication: Adenocarcinoma
     Route: 042
     Dates: start: 20231227, end: 20231227
  5. DOCETAXEL [Suspect]
     Active Substance: DOCETAXEL\DOCETAXEL ANHYDROUS
     Indication: Adenocarcinoma
     Route: 042
     Dates: start: 20240116, end: 20240116
  6. DOCETAXEL [Suspect]
     Active Substance: DOCETAXEL\DOCETAXEL ANHYDROUS
     Indication: Adenocarcinoma
     Route: 042
     Dates: start: 20240206, end: 20240206
  7. DOCETAXEL [Suspect]
     Active Substance: DOCETAXEL\DOCETAXEL ANHYDROUS
     Indication: Adenocarcinoma
     Route: 042
     Dates: start: 20240319, end: 20240319
  8. DOCETAXEL [Suspect]
     Active Substance: DOCETAXEL\DOCETAXEL ANHYDROUS
     Indication: Adenocarcinoma
     Route: 042
     Dates: start: 20240409, end: 20240409
  9. DOCETAXEL [Suspect]
     Active Substance: DOCETAXEL\DOCETAXEL ANHYDROUS
     Indication: Adenocarcinoma
     Route: 042
     Dates: start: 20240430, end: 20240430
  10. DOCETAXEL [Suspect]
     Active Substance: DOCETAXEL\DOCETAXEL ANHYDROUS
     Indication: Adenocarcinoma
     Route: 042
     Dates: start: 20240521, end: 20240521
  11. AMLODIPINE [Concomitant]
     Active Substance: AMLODIPINE BESYLATE
     Dates: start: 20221101
  12. ACETAMINOPHEN\HYDROCODONE [Concomitant]
     Active Substance: ACETAMINOPHEN\HYDROCODONE
  13. POTASSIUM CHLORIDE [Concomitant]
     Active Substance: POTASSIUM CHLORIDE
     Dates: start: 20231006
  14. CALCIUM [Concomitant]
     Active Substance: CALCIUM
     Dates: start: 2020
  15. VITAMIN C [Concomitant]
     Active Substance: ASCORBIC ACID
     Dates: start: 2020
  16. VITAMIN D [Concomitant]
     Active Substance: VITAMIN D NOS
     Dates: start: 2020
  17. ZINC [Concomitant]
     Active Substance: ZINC
     Dates: start: 2020
  18. BEMPEDOIC ACID/EZETIMIBE [Concomitant]
     Dates: start: 20231111
  19. POLYETHYLENE GLYCOL 3350 [Concomitant]
     Active Substance: POLYETHYLENE GLYCOL 3350
     Dates: start: 20231115
  20. TRIAMCINOLONE [Concomitant]
     Active Substance: TRIAMCINOLONE
     Dates: start: 20231205
  21. LEVOTHYROXINE [Concomitant]
     Active Substance: LEVOTHYROXINE\LEVOTHYROXINE SODIUM
     Dates: start: 20231215
  22. PREDNISONE [Concomitant]
     Active Substance: PREDNISONE
     Dates: start: 20231215
  23. LEUPROLIDE [Concomitant]
     Active Substance: LEUPROLIDE
     Dates: start: 20220829

REACTIONS (7)
  - Death [Fatal]
  - Metastases to bone [Unknown]
  - Hernia [Recovered/Resolved]
  - Prostatic specific antigen increased [Unknown]
  - Malignant neoplasm progression [Unknown]
  - Abdominal pain [Unknown]
  - Bone scan abnormal [Unknown]

NARRATIVE: CASE EVENT DATE: 20240227
